FAERS Safety Report 5402864-1 (Version None)
Quarter: 2007Q3

REPORT INFORMATION
  Report Type: 
  Country: None (occurrence: None)
  Receive Date: 20070801
  Receipt Date: 20070723
  Transmission Date: 20080115
  Serious: Yes (Disabling)
  Sender: FDA-Public Use
  Company Number: CH-ABBOTT-07P-151-0375422-00

PATIENT
  Age: 36 Year
  Sex: Female

DRUGS (3)
  1. DEPAKENE [Suspect]
     Indication: BIPOLAR DISORDER
     Route: 048
     Dates: start: 20070414
  2. LITHIUM SULFATE [Concomitant]
     Indication: BIPOLAR DISORDER
     Route: 048
     Dates: start: 20070601
  3. QUETIAPINE FUMARATE [Concomitant]
     Indication: HISTRIONIC PERSONALITY DISORDER
     Route: 048
     Dates: start: 20070414

REACTIONS (3)
  - HIRSUTISM [None]
  - HYPERANDROGENISM [None]
  - WEIGHT INCREASED [None]
